FAERS Safety Report 8461573-5 (Version None)
Quarter: 2012Q2

REPORT INFORMATION
  Report Type: 
  Country: None (occurrence: None)
  Receive Date: 20120625
  Receipt Date: 20120618
  Transmission Date: 20120825
  Serious: Yes (Other)
  Sender: FDA-Public Use
  Company Number: PHHY2012FR053377

PATIENT
  Sex: Male

DRUGS (8)
  1. POLARAMINE [Concomitant]
     Dosage: 1 DF
     Route: 042
     Dates: start: 20111228
  2. NEORAL [Suspect]
     Indication: BONE MARROW FAILURE
     Dates: end: 20111228
  3. ACETAMINOPHEN [Concomitant]
     Dates: start: 20111228
  4. ATGAM [Suspect]
     Indication: BONE MARROW FAILURE
     Dosage: 2 G, DAILY
     Dates: start: 20111228, end: 20111231
  5. VALACYCLOVIR HYDROCHLORIDE [Concomitant]
  6. SOLU-MEDROL [Concomitant]
  7. SANDIMMUNE [Suspect]
     Dosage: 2 DF
     Route: 042
     Dates: start: 20111228
  8. BACTRIM [Concomitant]

REACTIONS (4)
  - URTICARIA [None]
  - HYPERTENSION [None]
  - RENAL FAILURE ACUTE [None]
  - DECREASED APPETITE [None]
